FAERS Safety Report 16397916 (Version 1)
Quarter: 2019Q2

REPORT INFORMATION
  Report Type: Spontaneous
  Country: PT (occurrence: PT)
  Receive Date: 20190606
  Receipt Date: 20190606
  Transmission Date: 20190711
  Serious: Yes (Hospitalization, Other)
  Sender: FDA-Public Use
  Company Number: PT-AUROBINDO-AUR-APL-2019-023278

PATIENT

DRUGS (8)
  1. VALPROIC ACID. [Suspect]
     Active Substance: VALPROIC ACID
     Indication: MOOD ALTERED
     Dosage: 500 MILLIGRAM, ONCE A DAY
     Route: 065
  2. METHYLENE BLUE. [Suspect]
     Active Substance: METHYLENE BLUE
     Dosage: 100 MILLIGRAM
     Route: 042
  3. BUPROPION MODIFIED RELEASE TABLETS [Suspect]
     Active Substance: BUPROPION
     Dosage: 300 MILLIGRAM, ONCE A DAY
     Route: 048
  4. METHYLENE BLUE. [Suspect]
     Active Substance: METHYLENE BLUE
     Dosage: 50 MILLIGRAM
     Route: 042
  5. VALPROIC ACID. [Suspect]
     Active Substance: VALPROIC ACID
     Indication: AFFECTIVE DISORDER
  6. BUPROPION MODIFIED RELEASE TABLETS [Suspect]
     Active Substance: BUPROPION
     Dosage: 4800 MILLIGRAM,TOTAL OF SIXTEEN 300MG TABLETS WERE INGESTED.
     Route: 048
  7. METHYLENE BLUE. [Suspect]
     Active Substance: METHYLENE BLUE
     Indication: METHAEMOGLOBINAEMIA
     Dosage: 1 MILLIGRAM/KILOGRAM,TOTAL OF 150MG WAS ADMINISTERED
     Route: 042
  8. BUPROPION MODIFIED RELEASE TABLETS [Suspect]
     Active Substance: BUPROPION
     Indication: PRODUCT USED FOR UNKNOWN INDICATION
     Dosage: 16 DOSAGE FORM
     Route: 065

REACTIONS (14)
  - Fatigue [Unknown]
  - Dyspnoea [Unknown]
  - Oxygen saturation abnormal [Unknown]
  - Methaemoglobinaemia [Recovered/Resolved]
  - Toxicity to various agents [Unknown]
  - Poisoning [Unknown]
  - Blood lactic acid increased [Recovered/Resolved]
  - Confusional state [Unknown]
  - Cyanosis central [Unknown]
  - Generalised tonic-clonic seizure [Recovered/Resolved]
  - Extra dose administered [Unknown]
  - Overdose [Unknown]
  - Disorientation [Unknown]
  - Off label use [Unknown]
